FAERS Safety Report 11445468 (Version 1)
Quarter: 2015Q3

REPORT INFORMATION
  Report Type: Spontaneous
  Country: US (occurrence: None)
  Receive Date: 20150901
  Receipt Date: 20150901
  Transmission Date: 20151125
  Serious: No
  Sender: FDA-Public Use
  Company Number: None

PATIENT
  Age: 17 Year
  Sex: Male
  Weight: 83.92 kg

DRUGS (5)
  1. MULTIVITAMIN [Concomitant]
     Active Substance: VITAMINS
  2. BUPROPION XL [Suspect]
     Active Substance: BUPROPION
     Indication: DEPRESSION
     Dosage: 1 PILL TWICE DAILY INTO THE EYE
     Dates: start: 20150602, end: 20150717
  3. PROBIOTIC [Concomitant]
     Active Substance: PROBIOTICS NOS
  4. FISH OIL [Concomitant]
     Active Substance: FISH OIL
  5. VITAMIN C [Concomitant]
     Active Substance: ASCORBIC ACID

REACTIONS (3)
  - Sleep disorder [None]
  - Tinnitus [None]
  - Road traffic accident [None]

NARRATIVE: CASE EVENT DATE: 20150714
